FAERS Safety Report 7098320-8 (Version None)
Quarter: 2010Q4

REPORT INFORMATION
  Report Type: 
  Country: None (occurrence: None)
  Receive Date: 20101112
  Receipt Date: 20101105
  Transmission Date: 20110411
  Serious: No
  Sender: FDA-Public Use
  Company Number: US-PFIZER INC-2010142776

PATIENT
  Sex: Female
  Weight: 122.45 kg

DRUGS (5)
  1. LYRICA [Suspect]
     Indication: RHEUMATOID ARTHRITIS
     Dosage: 50 MG, 2X/DAY
     Route: 048
     Dates: start: 20080101
  2. LYRICA [Suspect]
     Dosage: 75 MG, 2X/DAY
     Route: 048
  3. LYRICA [Suspect]
     Dosage: 100 MG, 2X/DAY
     Route: 048
  4. LYRICA [Suspect]
     Dosage: 200 MG, 2X/DAY
     Route: 048
  5. VICODIN [Suspect]
     Indication: RHEUMATOID ARTHRITIS
     Dosage: UNK
     Route: 048

REACTIONS (2)
  - DRUG INEFFECTIVE FOR UNAPPROVED INDICATION [None]
  - PRURITUS [None]
